FAERS Safety Report 4434057-9 (Version None)
Quarter: 2004Q3

REPORT INFORMATION
  Report Type: 
  Country: None (occurrence: None)
  Receive Date: 20040825
  Receipt Date: 20040817
  Transmission Date: 20050211
  Serious: Yes (Death)
  Sender: FDA-Public Use
  Company Number: 2004221935JP

PATIENT
  Age: 75 Year
  Sex: Male

DRUGS (11)
  1. HALCION [Suspect]
     Indication: INSOMNIA
     Dosage: 0.125 MG/DAY, ORAL
     Route: 048
     Dates: start: 20040426, end: 20040606
  2. DAIKENCHU-TO (CHINESE HERBAL MEDICINE) [Suspect]
     Indication: CONSTIPATION
     Dosage: 7.5 G/DAY, ORAL
     Route: 048
     Dates: start: 20040421, end: 20040607
  3. SOFALCONE (SOFALCONE) [Suspect]
     Indication: GASTRITIS
     Dosage: 300 MG/DAY, ORAL
     Route: 048
     Dates: start: 20040426, end: 20040607
  4. MEXITIL [Suspect]
     Indication: ARRHYTHMIA
     Dosage: 200 MG/DAY, ORAL
     Route: 048
     Dates: start: 20040426, end: 20040607
  5. CATACLOT (OZAGREL SODIUM) [Suspect]
     Indication: CEREBRAL THROMBOSIS
     Dosage: 80 MG, BID, IV
     Route: 042
     Dates: start: 20040526, end: 20040607
  6. SENNOSIDE A+B (SENNOSIDE A+B) [Concomitant]
  7. MERISLON (BETAHISTINE HYDROCHLORIDE) [Concomitant]
  8. TRAVELMIN (DIPROPHYLLINE, DIPHENHYDRAMINE SALICYLATE) [Concomitant]
  9. CEROCRAL (IFENPRODIL TARTRATE) [Concomitant]
  10. ASPIRIN [Concomitant]
  11. ALDACTONE-A [Concomitant]

REACTIONS (16)
  - ABNORMAL BEHAVIOUR [None]
  - ARRHYTHMIA [None]
  - CEREBRAL INFARCTION [None]
  - CEREBRAL THROMBOSIS [None]
  - DEPRESSED LEVEL OF CONSCIOUSNESS [None]
  - DISSEMINATED INTRAVASCULAR COAGULATION [None]
  - DRUG INTERACTION [None]
  - DYSSTASIA [None]
  - GASTRITIS [None]
  - HAEMODIALYSIS [None]
  - HEPATITIS FULMINANT [None]
  - MULTI-ORGAN FAILURE [None]
  - PLATELET COUNT DECREASED [None]
  - SOMNOLENCE [None]
  - STARING [None]
  - VERTIGO [None]
